FAERS Safety Report 11382900 (Version 2)
Quarter: 2015Q4

REPORT INFORMATION
  Report Type: Spontaneous
  Country: FR (occurrence: FR)
  Receive Date: 20150814
  Receipt Date: 20151209
  Transmission Date: 20160304
  Serious: Yes (Hospitalization, Other)
  Sender: FDA-Public Use
  Company Number: FR-PFIZER INC-2015265228

PATIENT
  Age: 95 Year
  Sex: Female

DRUGS (8)
  1. ATARAX [Suspect]
     Active Substance: HYDROXYZINE\HYDROXYZINE HYDROCHLORIDE
     Dosage: 1 DF, 1X/DAY
     Route: 048
     Dates: start: 20150513, end: 20150709
  2. XANAX [Suspect]
     Active Substance: ALPRAZOLAM
     Dosage: 1 DF (0.50 MG)  IN THE MORNING AND AT NOON, THEN HALF DF (0.25MG) IN THE EVENING
     Route: 048
     Dates: start: 20150617, end: 20150709
  3. EFFEXOR [Suspect]
     Active Substance: VENLAFAXINE HYDROCHLORIDE
     Dosage: 1 DF, 1X/DAY
     Route: 048
     Dates: start: 20150401, end: 20150709
  4. TIAPRIDAL /00435701/ [Suspect]
     Active Substance: TIAPRIDE HYDROCHLORIDE
     Dosage: 10 GTT, 2X/DAY IN THE MORNING AND AT NOON
     Route: 048
     Dates: start: 20150626, end: 20150709
  5. XANAX [Suspect]
     Active Substance: ALPRAZOLAM
     Dosage: 0.5 MG, 2X/DAY (1 DF IN THE MORNING AND AT NOON)
     Route: 048
     Dates: start: 20150311
  6. TIAPRIDAL /00435701/ [Suspect]
     Active Substance: TIAPRIDE HYDROCHLORIDE
     Dosage: 5 GTT, 2X/DAY IN THE MORNING AND AT NOON
     Route: 048
     Dates: start: 20150401
  7. TIAPRIDAL /00435701/ [Suspect]
     Active Substance: TIAPRIDE HYDROCHLORIDE
     Dosage: 7 GTT, 2X/DAY IN THE MORNING AND AT NOON
     Route: 048
  8. ATARAX [Suspect]
     Active Substance: HYDROXYZINE\HYDROXYZINE HYDROCHLORIDE
     Dosage: 0.5 DF, 1X/DAY
     Route: 048
     Dates: start: 20150429

REACTIONS (5)
  - Somnolence [Recovered/Resolved]
  - Tremor [Recovered/Resolved]
  - Confusional state [Recovered/Resolved]
  - Sluggishness [Unknown]
  - Vascular dementia [Unknown]

NARRATIVE: CASE EVENT DATE: 20150707
